FAERS Safety Report 16799303 (Version 2)
Quarter: 2019Q3

REPORT INFORMATION
  Report Type: Spontaneous
  Country: US (occurrence: US)
  Receive Date: 20190912
  Receipt Date: 20190916
  Transmission Date: 20191005
  Serious: No
  Sender: FDA-Public Use
  Company Number: US-PFIZER INC-2019393687

PATIENT
  Age: 51 Year
  Sex: Female
  Weight: 70.3 kg

DRUGS (3)
  1. PREGABALIN. [Suspect]
     Active Substance: PREGABALIN
     Indication: NEUROPATHY PERIPHERAL
     Dosage: 2 DF (300 MG = 2 TABLETS), 2X/DAY
     Route: 048
     Dates: start: 20190816
  2. CYMBALTA [Concomitant]
     Active Substance: DULOXETINE HYDROCHLORIDE
     Indication: PAIN
     Dosage: 90 MG, DAILY (30MG, ONE CAPSULE IN THE MORNING AND TWO CAPSULES AT NIGHT BY MOUTH )
     Route: 048
  3. PREGABALIN. [Suspect]
     Active Substance: PREGABALIN
     Indication: FIBROMYALGIA
     Dosage: 300 MG, 2X/DAY (150MG, TWO CAPSULES TWICE A DAY BY MOUTH)
     Route: 048
     Dates: start: 20190816

REACTIONS (2)
  - Drug ineffective [Not Recovered/Not Resolved]
  - Feeling abnormal [Not Recovered/Not Resolved]

NARRATIVE: CASE EVENT DATE: 20190816
